FAERS Safety Report 25399524 (Version 1)
Quarter: 2025Q2

REPORT INFORMATION
  Report Type: Spontaneous
  Country: CN (occurrence: CN)
  Receive Date: 20250605
  Receipt Date: 20250605
  Transmission Date: 20250716
  Serious: Yes (Hospitalization, Other)
  Sender: SANOFI AVENTIS
  Company Number: CN-SA-2025SA152880

PATIENT
  Age: 86 Year
  Sex: Male
  Weight: 48 kg

DRUGS (2)
  1. HYDROCHLOROTHIAZIDE\IRBESARTAN [Suspect]
     Active Substance: HYDROCHLOROTHIAZIDE\IRBESARTAN
     Indication: Hypertension
     Dosage: 1 U, QD
     Route: 048
     Dates: start: 20250408, end: 20250510
  2. NIFEDIPINE [Concomitant]
     Active Substance: NIFEDIPINE
     Route: 048

REACTIONS (8)
  - Productive cough [Unknown]
  - Tachypnoea [Unknown]
  - Condition aggravated [Unknown]
  - Asthenia [Unknown]
  - Hypoaesthesia [Unknown]
  - Chest discomfort [Unknown]
  - Hyperkalaemia [Recovered/Resolved]
  - Dizziness [Unknown]

NARRATIVE: CASE EVENT DATE: 20250101
